FAERS Safety Report 17502018 (Version 1)
Quarter: 2020Q1

REPORT INFORMATION
  Report Type: Spontaneous
  Country: US (occurrence: US)
  Receive Date: 20200305
  Receipt Date: 20200305
  Transmission Date: 20200409
  Serious: Yes (Hospitalization, Other)
  Sender: FDA-Public Use
  Company Number: US-JNJFOC-20200302311

PATIENT
  Age: 16 Year
  Sex: Male

DRUGS (2)
  1. RISPERDAL [Suspect]
     Active Substance: RISPERIDONE
     Indication: MENTAL DISORDER
     Route: 065
  2. EFFEXOR [Suspect]
     Active Substance: VENLAFAXINE HYDROCHLORIDE
     Indication: MENTAL DISORDER
     Route: 065

REACTIONS (3)
  - Sinus tachycardia [Recovering/Resolving]
  - Gynaecomastia [Unknown]
  - Overdose [Unknown]

NARRATIVE: CASE EVENT DATE: 20011012
